FAERS Safety Report 5948603-7 (Version None)
Quarter: 2008Q4

REPORT INFORMATION
  Report Type: 
  Country: None (occurrence: None)
  Receive Date: 20081111
  Receipt Date: 20081104
  Transmission Date: 20090506
  Serious: Yes (Life-Threatening)
  Sender: FDA-Public Use
  Company Number: TW-MERCK-0811TWN00003

PATIENT
  Age: 56 Year
  Sex: Male

DRUGS (4)
  1. INVANZ [Suspect]
     Indication: URINARY TRACT INFECTION
     Route: 041
     Dates: start: 20081023, end: 20081026
  2. PHENYTOIN [Concomitant]
     Indication: HAEMORRHAGE INTRACRANIAL
     Route: 048
     Dates: start: 20080101
  3. METOCLOPRAMIDE [Concomitant]
     Indication: ANTIEMETIC SUPPORTIVE CARE
     Route: 051
     Dates: start: 20081023, end: 20081025
  4. VANCOMYCIN [Concomitant]
     Indication: INFECTION
     Route: 041
     Dates: start: 20081021, end: 20081029

REACTIONS (2)
  - APNOEA [None]
  - GRAND MAL CONVULSION [None]
